FAERS Safety Report 8436256-8 (Version None)
Quarter: 2012Q2

REPORT INFORMATION
  Report Type: 
  Country: None (occurrence: None)
  Receive Date: 20120614
  Receipt Date: 20120611
  Transmission Date: 20120825
  Serious: Yes (Hospitalization)
  Sender: FDA-Public Use
  Company Number: BE-ROCHE-1078237

PATIENT
  Sex: Female
  Weight: 64 kg

DRUGS (8)
  1. VENTOLIN [Concomitant]
     Indication: ASTHMA
  2. XOLAIR [Suspect]
     Indication: ASTHMA
     Dates: start: 20120404, end: 20120404
  3. XOLAIR [Suspect]
     Dates: start: 20120502, end: 20120502
  4. LOMUDAL [Concomitant]
     Indication: ASTHMA
  5. RHINOCORT [Concomitant]
     Indication: RHINITIS ALLERGIC
     Route: 045
  6. FLUTICASONE PROPIONATE/SALMETEROL [Concomitant]
     Indication: ASTHMA
     Dosage: STRENGTH: 25/250 UG
  7. XOLAIR [Suspect]
     Dates: start: 20120418, end: 20120418
  8. SPIRIVA [Concomitant]
     Indication: ASTHMA

REACTIONS (3)
  - NAUSEA [None]
  - DIZZINESS [None]
  - MYALGIA [None]
